FAERS Safety Report 15791267 (Version 3)
Quarter: 2020Q2

REPORT INFORMATION
  Report Type: Spontaneous
  Country: IL (occurrence: IL)
  Receive Date: 20190104
  Receipt Date: 20200430
  Transmission Date: 20200713
  Serious: Yes (Death, Life-Threatening, Hospitalization)
  Sender: FDA-Public Use
  Company Number: IL-CELGENEUS-ISR-20181206243

PATIENT
  Age: 81 Year
  Sex: Male
  Weight: 77 kg

DRUGS (12)
  1. ELOCOM [Concomitant]
     Active Substance: MOMETASONE FUROATE
     Indication: RASH MACULO-PAPULAR
     Dosage: 1 DOSAGE FORMS
     Route: 061
     Dates: start: 20171215
  2. VENETOCLAX. [Concomitant]
     Active Substance: VENETOCLAX
     Dosage: 100 MILLIGRAM
     Route: 048
     Dates: start: 20171211, end: 20171211
  3. DERMACOL [Concomitant]
     Active Substance: COSMETICS
     Indication: RASH MACULO-PAPULAR
     Dosage: 1 DOSAGE FORMS
     Route: 061
     Dates: start: 20171213
  4. AZACITIDINE INJECTABLE [Suspect]
     Active Substance: AZACITIDINE
     Indication: ACUTE MYELOID LEUKAEMIA
     Dosage: 75 MILLIGRAM/SQ. METER
     Route: 058
     Dates: start: 20171210, end: 20181201
  5. VENETOCLAX. [Concomitant]
     Active Substance: VENETOCLAX
     Dosage: 200 MILLIGRAM
     Route: 048
     Dates: start: 20171212, end: 20171212
  6. LAMIVUDINE. [Concomitant]
     Active Substance: LAMIVUDINE
     Indication: HEPATITIS B
     Dosage: 100 MILLIGRAM
     Route: 048
     Dates: start: 20171210
  7. VENETOCLAX. [Concomitant]
     Active Substance: VENETOCLAX
     Dosage: 400 MILLIGRAM
     Route: 048
     Dates: start: 20171213, end: 20181210
  8. VENETOCLAX. [Concomitant]
     Active Substance: VENETOCLAX
     Indication: ACUTE MYELOID LEUKAEMIA
     Dosage: 50 MILLIGRAM
     Route: 048
     Dates: start: 20171210, end: 20171210
  9. VITAMIN B12 [Concomitant]
     Active Substance: CYANOCOBALAMIN
     Indication: VITAMIN B12 DEFICIENCY
     Dosage: 1000 MICROGRAM
     Route: 060
     Dates: start: 201711
  10. ALLOPURINOL. [Concomitant]
     Active Substance: ALLOPURINOL
     Indication: PROPHYLAXIS
     Route: 048
     Dates: start: 20171209, end: 20171217
  11. ALFUZOSIN [Concomitant]
     Active Substance: ALFUZOSIN
     Indication: BENIGN PROSTATIC HYPERPLASIA
     Dosage: 10 MILLIGRAM
     Route: 048
     Dates: start: 2011
  12. CALTRARE+VITAMIN D [Concomitant]
     Indication: VITAMIN B12 DEFICIENCY
     Dosage: 1 TABLET
     Route: 048
     Dates: start: 20140512

REACTIONS (2)
  - Anal abscess [Fatal]
  - Lower gastrointestinal haemorrhage [Recovered/Resolved]

NARRATIVE: CASE EVENT DATE: 20181209
